FAERS Safety Report 13459332 (Version 1)
Quarter: 2017Q2

REPORT INFORMATION
  Report Type: Spontaneous
  Country: DE (occurrence: DE)
  Receive Date: 20170419
  Receipt Date: 20170419
  Transmission Date: 20170830
  Serious: Yes (Hospitalization, Other)
  Sender: FDA-Public Use
  Company Number: PHHY2017DE056501

PATIENT
  Age: 54 Year
  Sex: Male

DRUGS (1)
  1. COSENTYX [Suspect]
     Active Substance: SECUKINUMAB
     Indication: PRODUCT USED FOR UNKNOWN INDICATION
     Dosage: 300 MG, QMO
     Route: 058
     Dates: start: 201601

REACTIONS (4)
  - Intervertebral discitis [Recovered/Resolved]
  - Fistula of small intestine [Recovered/Resolved]
  - Device related infection [Recovered/Resolved]
  - Bacteroides infection [Recovered/Resolved]

NARRATIVE: CASE EVENT DATE: 20161124
